FAERS Safety Report 11809535 (Version 2)
Quarter: 2017Q3

REPORT INFORMATION
  Report Type: Spontaneous
  Country: US (occurrence: US)
  Receive Date: 20151208
  Receipt Date: 20170802
  Transmission Date: 20171127
  Serious: Yes (Hospitalization, Other)
  Sender: FDA-Public Use
  Company Number: US-SUN PHARMACEUTICAL INDUSTRIES LTD-2015US-107293

PATIENT
  Age: 35 Year
  Sex: Female

DRUGS (1)
  1. OXYCODONE [Suspect]
     Active Substance: OXYCODONE
     Indication: BACK PAIN
     Dosage: UNK
     Route: 048

REACTIONS (6)
  - Respiratory depression [Unknown]
  - Intentional overdose [Unknown]
  - Hypoxia [Unknown]
  - Quadriplegia [Unknown]
  - Spinal cord ischaemia [Unknown]
  - Unresponsive to stimuli [Unknown]
